FAERS Safety Report 6249114-4 (Version None)
Quarter: 2009Q2

REPORT INFORMATION
  Report Type: 
  Country: None (occurrence: None)
  Receive Date: 20090624
  Receipt Date: 20090615
  Transmission Date: 20091009
  Serious: Yes (Other)
  Sender: FDA-Public Use
  Company Number: LTI2009A00180

PATIENT
  Age: 53 Year
  Sex: Male

DRUGS (4)
  1. ACTOS [Suspect]
     Indication: TYPE 2 DIABETES MELLITUS
     Dosage: 45 MG DAILY (45 MG, 1 IN 1 D),ORAL;  DAYS
     Route: 048
     Dates: start: 20060701
  2. NOVONORM (REPAGLINIDE) [Concomitant]
  3. IRBESARTAN [Concomitant]
  4. SIMVASTATIN (SIMVASTATIN) [Concomitant]

REACTIONS (2)
  - DEEP VEIN THROMBOSIS [None]
  - PULMONARY EMBOLISM [None]
